FAERS Safety Report 8615102-3 (Version None)
Quarter: 2012Q3

REPORT INFORMATION
  Report Type: 
  Country: None (occurrence: None)
  Receive Date: 20120823
  Receipt Date: 20120814
  Transmission Date: 20120928
  Serious: Yes (Hospitalization, Disabling, Other)
  Sender: FDA-Public Use
  Company Number: US-009507513-2012SP022374

PATIENT

DRUGS (4)
  1. COUMADIN [Suspect]
     Dosage: 12 MG, QD
     Dates: start: 20110901
  2. COUMADIN [Suspect]
     Dosage: UNK
     Dates: end: 20101201
  3. NUVARING [Suspect]
     Indication: CONTRACEPTION
     Dosage: UNK
     Dates: start: 20090701, end: 20090801
  4. COUMADIN [Suspect]
     Indication: ANTICOAGULANT THERAPY
     Dosage: UNK
     Dates: start: 20090801, end: 20091201

REACTIONS (14)
  - CHOLELITHIASIS [None]
  - ARTHRALGIA [None]
  - PARESIS [None]
  - DRUG RESISTANCE [None]
  - PULMONARY THROMBOSIS [None]
  - ANTIPHOSPHOLIPID ANTIBODIES POSITIVE [None]
  - PULMONARY EMBOLISM [None]
  - ANTICOAGULATION DRUG LEVEL BELOW THERAPEUTIC [None]
  - ALOPECIA [None]
  - CHOLECYSTECTOMY [None]
  - JOINT INJURY [None]
  - ANTIPHOSPHOLIPID SYNDROME [None]
  - DRUG HYPERSENSITIVITY [None]
  - VENA CAVA FILTER INSERTION [None]
